FAERS Safety Report 18362496 (Version 2)
Quarter: 2020Q4

REPORT INFORMATION
  Report Type: Other
  Country: GB (occurrence: GB)
  Receive Date: 20201009
  Receipt Date: 20201204
  Transmission Date: 20210114
  Serious: Yes (Hospitalization)
  Sender: FDA-Public Use
  Company Number: GB-ROCHE-2692039

PATIENT
  Age: 16 Month
  Sex: Female

DRUGS (7)
  1. CEFUROXIME. [Concomitant]
     Active Substance: CEFUROXIME
  2. CLONAZEPAM. [Suspect]
     Active Substance: CLONAZEPAM
     Indication: SEIZURE
     Route: 065
  3. SABRIL [Suspect]
     Active Substance: VIGABATRIN
     Indication: SEIZURE
     Route: 065
  4. LEVETIRACETAM. [Suspect]
     Active Substance: LEVETIRACETAM
     Indication: INFANTILE SPASMS
     Route: 065
  5. LEVETIRACETAM. [Suspect]
     Active Substance: LEVETIRACETAM
     Route: 065
  6. CLOBAZAM. [Suspect]
     Active Substance: CLOBAZAM
     Indication: INFANTILE SPASMS
     Route: 065
  7. OXYGEN. [Concomitant]
     Active Substance: OXYGEN

REACTIONS (7)
  - Coma blister [Recovered/Resolved]
  - Swelling face [Unknown]
  - Blister [Recovered/Resolved]
  - Seizure [Unknown]
  - Respiratory syncytial virus bronchiolitis [Unknown]
  - Drug interaction [Unknown]
  - Somnolence [Recovered/Resolved]
